FAERS Safety Report 8243174-7 (Version None)
Quarter: 2012Q1

REPORT INFORMATION
  Report Type: 
  Country: None (occurrence: None)
  Receive Date: 20120329
  Receipt Date: 20120315
  Transmission Date: 20120608
  Serious: Yes (Other)
  Sender: FDA-Public Use
  Company Number: PT-MYLANLABS-2012S1005988

PATIENT
  Age: 78 Year
  Sex: Male

DRUGS (9)
  1. THALIDOMIDE [Suspect]
     Indication: MULTIPLE MYELOMA
     Route: 065
     Dates: start: 20080401
  2. VALACICLOVIR [Concomitant]
     Indication: HERPES ZOSTER
     Route: 065
  3. LENALIDOMIDE [Concomitant]
     Indication: MULTIPLE MYELOMA
     Dosage: 10 MG/D FOR 21D IN 28-D CYCLE
     Route: 065
  4. ASPIRIN [Concomitant]
     Indication: THROMBOSIS PROPHYLAXIS
     Route: 065
  5. CLONIXIN [Concomitant]
     Indication: BACK PAIN
     Route: 048
  6. PAMIDRONIC ACID [Concomitant]
     Indication: MULTIPLE MYELOMA
     Route: 042
     Dates: start: 20090501
  7. TRAMADOL HCL [Concomitant]
     Indication: BACK PAIN
     Route: 048
  8. PREDNISOLONE [Suspect]
     Indication: MULTIPLE MYELOMA
     Route: 065
     Dates: start: 20080401
  9. MELPHALAN HYDROCHLORIDE [Suspect]
     Indication: MULTIPLE MYELOMA
     Route: 065
     Dates: start: 20080401

REACTIONS (1)
  - NEUROPATHY PERIPHERAL [None]
